FAERS Safety Report 7938379-6 (Version None)
Quarter: 2011Q4

REPORT INFORMATION
  Report Type: 
  Country: None (occurrence: None)
  Receive Date: 20111123
  Receipt Date: 20111116
  Transmission Date: 20120403
  Serious: Yes (Hospitalization)
  Sender: FDA-Public Use
  Company Number: US-GLAXOSMITHKLINE-A0784455A

PATIENT
  Age: 64 Year
  Sex: Female
  Weight: 102.7 kg

DRUGS (4)
  1. AVANDIA [Suspect]
     Indication: DIABETES MELLITUS
     Dosage: 8MG AT NIGHT
     Route: 048
     Dates: start: 20030219, end: 20070101
  2. AMARYL [Concomitant]
     Dates: start: 20030201
  3. REGULAR INSULIN [Concomitant]
     Dates: start: 20020901, end: 20060401
  4. LANTUS [Concomitant]
     Dates: start: 20060401

REACTIONS (10)
  - QUALITY OF LIFE DECREASED [None]
  - CARDIAC FAILURE CONGESTIVE [None]
  - CORONARY ARTERY DISEASE [None]
  - CELLULITIS [None]
  - MYOCARDIAL ISCHAEMIA [None]
  - MYOCARDIAL INFARCTION [None]
  - ANEURYSM [None]
  - ARTERIOSCLEROSIS CORONARY ARTERY [None]
  - CARDIOMEGALY [None]
  - EMOTIONAL DISTRESS [None]
